FAERS Safety Report 21118763 (Version 1)
Quarter: 2022Q3

REPORT INFORMATION
  Report Type: Spontaneous
  Country: GB (occurrence: GB)
  Receive Date: 20220722
  Receipt Date: 20220722
  Transmission Date: 20221027
  Serious: Yes (Life-Threatening)
  Sender: FDA-Public Use
  Company Number: GB-MHRA-MED-202207121622370890-CQKWV

PATIENT
  Age: 58 Year
  Sex: Female
  Weight: 72 kg

DRUGS (1)
  1. DOCETAXEL [Suspect]
     Active Substance: DOCETAXEL
     Indication: Breast cancer
     Dosage: 132MG, THERAPY DURATION : 1 DAYS,  IV DOCETAXEL
     Route: 065
     Dates: start: 20220707, end: 20220707

REACTIONS (1)
  - Anaphylactic reaction [Recovered/Resolved]

NARRATIVE: CASE EVENT DATE: 20220707
